FAERS Safety Report 11457786 (Version 1)
Quarter: 2015Q3

REPORT INFORMATION
  Report Type: Report from Study
  Country: AU (occurrence: AU)
  Receive Date: 20150904
  Receipt Date: 20150904
  Transmission Date: 20151125
  Serious: Yes (Other)
  Sender: FDA-Public Use
  Company Number: AU-CELGENE-AUS-2015085685

PATIENT

DRUGS (5)
  1. AZACITIDINE. [Suspect]
     Active Substance: AZACITIDINE
     Indication: PLASMA CELL MYELOMA
     Dosage: DOES INCREASE 50MG PER COHORT
     Route: 048
  2. AZACITIDINE. [Suspect]
     Active Substance: AZACITIDINE
     Dosage: DOES INCREASE 50MG PER COHORT
     Route: 048
  3. REVLIMID [Suspect]
     Active Substance: LENALIDOMIDE
     Indication: PLASMA CELL MYELOMA
     Route: 048
  4. DEXAMETHASONE. [Suspect]
     Active Substance: DEXAMETHASONE
     Indication: PLASMA CELL MYELOMA
     Dosage: 18.75 MILLIGRAM
     Route: 065
  5. AZACITIDINE. [Suspect]
     Active Substance: AZACITIDINE
     Dosage: DOES INCREASE 50MG PER COHORT
     Route: 048

REACTIONS (10)
  - Thrombocytopenia [Unknown]
  - Constipation [Unknown]
  - Insomnia [Unknown]
  - Fatigue [Unknown]
  - Nausea [Unknown]
  - Upper respiratory tract infection [Unknown]
  - Vomiting [Unknown]
  - Lower respiratory tract infection [Unknown]
  - Anaemia [Unknown]
  - Neutropenia [Unknown]
